FAERS Safety Report 15271578 (Version 8)
Quarter: 2020Q4

REPORT INFORMATION
  Report Type: Report from Study
  Country: US (occurrence: US)
  Receive Date: 20180813
  Receipt Date: 20201120
  Transmission Date: 20210113
  Serious: Yes (Hospitalization, Other)
  Sender: FDA-Public Use
  Company Number: US-PFIZER INC-2018321294

PATIENT
  Age: 67 Year
  Sex: Female

DRUGS (3)
  1. IBRANCE [Suspect]
     Active Substance: PALBOCICLIB
     Indication: BREAST CANCER FEMALE
     Dosage: 125 MG, CYCLIC (DAILY FOR 21 DAYS ON, 7 DAYS OFF)
     Route: 048
     Dates: start: 20180608, end: 20180829
  2. IBRANCE [Suspect]
     Active Substance: PALBOCICLIB
     Dosage: 125 MG, CYCLIC (DAY 1-21 OF 28 DAY CYCLE)
     Route: 048
     Dates: start: 20190905, end: 2019
  3. IBRANCE [Suspect]
     Active Substance: PALBOCICLIB
     Dosage: 100 MG, CYCLIC (DAY 1-21 OF 28 DAY CYCLE FOR 3 MONTHS)
     Route: 048

REACTIONS (14)
  - Oropharyngeal pain [Unknown]
  - Respiratory tract congestion [Unknown]
  - Pulmonary oedema [Recovering/Resolving]
  - Diarrhoea [Recovering/Resolving]
  - Skin discolouration [Unknown]
  - Dry skin [Unknown]
  - Blood glucose increased [Unknown]
  - Cardiac failure congestive [Unknown]
  - Pyrexia [Unknown]
  - Neuropathy peripheral [Unknown]
  - Dizziness [Unknown]
  - Paraesthesia [Unknown]
  - Skin wrinkling [Unknown]
  - Fatigue [Not Recovered/Not Resolved]

NARRATIVE: CASE EVENT DATE: 2018
